FAERS Safety Report 19153121 (Version 1)
Quarter: 2021Q2

REPORT INFORMATION
  Report Type: Spontaneous
  Country: CZ (occurrence: CZ)
  Receive Date: 20210419
  Receipt Date: 20210419
  Transmission Date: 20210717
  Serious: Yes (Other)
  Sender: FDA-Public Use
  Company Number: CZ-OTSUKA-2021_012616

PATIENT
  Sex: Female

DRUGS (1)
  1. JINARC [Suspect]
     Active Substance: TOLVAPTAN
     Indication: PRODUCT USED FOR UNKNOWN INDICATION
     Dosage: UNK
     Route: 065
     Dates: start: 202001, end: 202104

REACTIONS (1)
  - End stage renal disease [Unknown]
